FAERS Safety Report 7710577-6 (Version None)
Quarter: 2011Q3

REPORT INFORMATION
  Report Type: 
  Country: None (occurrence: None)
  Receive Date: 20110825
  Receipt Date: 20110816
  Transmission Date: 20111222
  Serious: Yes (Hospitalization)
  Sender: FDA-Public Use
  Company Number: US-B.I. PHARMACEUTICALS,INC./RIDGEFIELD-2011-BP-14660BP

PATIENT
  Sex: Female
  Weight: 98 kg

DRUGS (15)
  1. HYDROCHLOROTHIAZIDE [Concomitant]
     Dosage: 10 MG
     Route: 048
  2. SODIUM CHLORIDE [Concomitant]
     Dosage: 1000 ML
     Route: 042
     Dates: start: 20110628, end: 20110704
  3. ASPART [Concomitant]
     Indication: DIABETES MELLITUS
     Dates: start: 20110627, end: 20110704
  4. DUONEB [Concomitant]
     Indication: CHRONIC OBSTRUCTIVE PULMONARY DISEASE
     Route: 055
     Dates: start: 20110630, end: 20110630
  5. ALBUTEROL SULFATE [Concomitant]
     Indication: CHRONIC OBSTRUCTIVE PULMONARY DISEASE
     Route: 055
     Dates: start: 20110531, end: 20110603
  6. MIDAZOLAM HCL [Concomitant]
     Indication: SUPPLEMENTATION THERAPY
     Dosage: 50 ML
     Route: 042
     Dates: start: 20110609, end: 20110627
  7. SODIUM CHLORIDE [Concomitant]
     Indication: SUPPLEMENTATION THERAPY
     Dosage: 100 ML
     Route: 042
     Dates: start: 20110618, end: 20110704
  8. LEVEMIR [Concomitant]
     Indication: DIABETES MELLITUS
     Dosage: 20 U
     Route: 058
     Dates: start: 20110627, end: 20110704
  9. METFORMIN HCL [Concomitant]
     Dosage: 1700 MG
     Route: 048
  10. LISINOPRIL [Concomitant]
     Dosage: 125 MG
     Route: 048
     Dates: start: 20110202
  11. IBUPROFEN [Concomitant]
     Dosage: 400 MG
     Route: 048
  12. LIQUID TYLENOL [Concomitant]
     Indication: PROPHYLAXIS
     Dosage: 650 MG
     Route: 048
     Dates: start: 20110607, end: 20110623
  13. BI 1356 [Suspect]
     Indication: TYPE 2 DIABETES MELLITUS
     Dosage: 5 MG
     Route: 048
     Dates: start: 20110216, end: 20110509
  14. PREVACID [Concomitant]
     Indication: PROPHYLAXIS
     Dosage: 30 MG
     Route: 048
     Dates: start: 20110618, end: 20110704
  15. ALBUTEROL SULFATE AUTOHALER [Concomitant]
     Route: 055

REACTIONS (3)
  - CHOLECYSTECTOMY [None]
  - SEPTIC SHOCK [None]
  - INFECTION [None]
